FAERS Safety Report 5020060-7 (Version None)
Quarter: 2006Q2

REPORT INFORMATION
  Report Type: 
  Country: None (occurrence: None)
  Receive Date: 20060607
  Receipt Date: 20060328
  Transmission Date: 20061013
  Serious: Yes (Hospitalization)
  Sender: FDA-Public Use
  Company Number: J200600824

PATIENT
  Age: 43 Year
  Sex: Female

DRUGS (5)
  1. SAWACILLIN [Suspect]
     Indication: HELICOBACTER INFECTION
     Dosage: 750MG TWICE PER DAY
     Route: 048
     Dates: start: 20050614, end: 20050621
  2. TAKEPRON [Suspect]
     Indication: HELICOBACTER INFECTION
     Dosage: 30MG TWICE PER DAY
     Route: 048
     Dates: start: 20050614, end: 20050621
  3. KLARICID [Suspect]
     Indication: HELICOBACTER INFECTION
     Dosage: 200MG TWICE PER DAY
     Route: 048
     Dates: start: 20050614, end: 20050621
  4. METHYLPREDNISOLONE SODIUM SUCCINATE [Suspect]
     Indication: DRUG ERUPTION
     Dosage: 500MG PER DAY
     Route: 042
     Dates: start: 20050624, end: 20050626
  5. PREDONINE [Suspect]
     Indication: RASH ERYTHEMATOUS
     Route: 048
     Dates: start: 20050627, end: 20050715

REACTIONS (4)
  - DERMATITIS EXFOLIATIVE [None]
  - DRUG ERUPTION [None]
  - RASH ERYTHEMATOUS [None]
  - WHITE BLOOD CELL COUNT INCREASED [None]
